FAERS Safety Report 10792559 (Version 2)
Quarter: 2015Q2

REPORT INFORMATION
  Report Type: Spontaneous
  Country: US (occurrence: None)
  Receive Date: 20150211
  Receipt Date: 20150514
  Transmission Date: 20150821
  Serious: Yes (Life-Threatening, Hospitalization)
  Sender: FDA-Public Use
  Company Number: 1713747-2015-99944

PATIENT
  Age: 71 Year
  Sex: Female
  Weight: 112 kg

DRUGS (21)
  1. METOPROLOL TARTRATE. [Concomitant]
     Active Substance: METOPROLOL TARTRATE
  2. CEPHALEXIN. [Concomitant]
     Active Substance: CEPHALEXIN
  3. NOVOLOG [Concomitant]
     Active Substance: INSULIN ASPART
  4. 0.9% SODIUM CHLORIDE INJECTION [Suspect]
     Active Substance: SODIUM CHLORIDE
     Indication: CHRONIC KIDNEY DISEASE
     Dosage: HEMODIALYSIS
     Dates: start: 20141118
  5. LEVOTHYROXINE [Concomitant]
     Active Substance: LEVOTHYROXINE
  6. HYDROXYZINE HCL [Concomitant]
     Active Substance: HYDROXYZINE HYDROCHLORIDE
  7. METHOCARBOMAL [Concomitant]
     Active Substance: METHOCARBAMOL
  8. TRAMADOL [Concomitant]
     Active Substance: TRAMADOL
  9. OMEPRAZOLE. [Concomitant]
     Active Substance: OMEPRAZOLE
  10. NATURALYTE [Concomitant]
     Active Substance: ACETIC ACID\SODIUM ACETATE
  11. JANUVLA [Concomitant]
  12. TRIACINOLONE ACETONIDE [Concomitant]
  13. ANORO ELLIPTA [Concomitant]
     Active Substance: UMECLIDINIUM BROMIDE\VILANTEROL TRIFENATATE
  14. FLEXPEN [Concomitant]
     Active Substance: UNSPECIFIED INGREDIENT
  15. OPTIFLUX DIALYZER [Concomitant]
     Active Substance: DEVICE
  16. NATURALYTE BICARBONATE [Concomitant]
     Active Substance: SODIUM BICARBONATE
  17. AMITRIPTYLINE [Concomitant]
     Active Substance: AMITRIPTYLINE
  18. ASPIRIN. [Concomitant]
     Active Substance: ASPIRIN
  19. ULORIC [Concomitant]
     Active Substance: FEBUXOSTAT
  20. FRESENIUS HEMODIALYSIS SYSTEM [Concomitant]
  21. COMBISET BLOODLINES [Concomitant]

REACTIONS (13)
  - Chest discomfort [None]
  - Dyspnoea [None]
  - Scab [None]
  - Thrombocytopenia [None]
  - Thrombosis in device [None]
  - Hypertension [None]
  - Oxygen saturation decreased [None]
  - Pulmonary embolism [None]
  - Renal embolism [None]
  - Cellulitis [None]
  - Cyanosis [None]
  - Heparin-induced thrombocytopenia [None]
  - Dermatitis [None]

NARRATIVE: CASE EVENT DATE: 20141118
